FAERS Safety Report 7798620-X (Version None)
Quarter: 2011Q4

REPORT INFORMATION
  Report Type: 
  Country: None (occurrence: None)
  Receive Date: 20111005
  Receipt Date: 20110921
  Transmission Date: 20120403
  Serious: Yes (Death)
  Sender: FDA-Public Use
  Company Number: US-GILEAD-2011-0043564

PATIENT

DRUGS (2)
  1. LETAIRIS [Suspect]
     Indication: SCLERODERMA
  2. LETAIRIS [Suspect]
     Indication: PULMONARY HYPERTENSION
     Route: 048
     Dates: start: 20100303

REACTIONS (2)
  - MYOCARDIAL INFARCTION [None]
  - CARDIAC ARREST [None]
